FAERS Safety Report 7862504-9 (Version None)
Quarter: 2011Q4

REPORT INFORMATION
  Report Type: 
  Country: None (occurrence: None)
  Receive Date: 20111027
  Receipt Date: 20101102
  Transmission Date: 20120403
  Serious: No
  Sender: FDA-Public Use
  Company Number: US-AMGEN-USASP2010003235

PATIENT
  Age: 28 Year
  Sex: Female

DRUGS (1)
  1. ENBREL [Suspect]
     Indication: PSORIATIC ARTHROPATHY
     Dates: start: 20101002, end: 20101002

REACTIONS (5)
  - INCREASED UPPER AIRWAY SECRETION [None]
  - PSORIATIC ARTHROPATHY [None]
  - MOBILITY DECREASED [None]
  - COUGH [None]
  - VULVOVAGINAL MYCOTIC INFECTION [None]
